FAERS Safety Report 7463034-9 (Version None)
Quarter: 2011Q2

REPORT INFORMATION
  Report Type: 
  Country: None (occurrence: None)
  Receive Date: 20110506
  Receipt Date: 20110120
  Transmission Date: 20111010
  Serious: Yes (Hospitalization, Other)
  Sender: FDA-Public Use
  Company Number: US-BAYER-201035560NA

PATIENT
  Age: 15 Year
  Sex: Female
  Weight: 47.619 kg

DRUGS (3)
  1. YASMIN [Suspect]
     Indication: PREMENSTRUAL SYNDROME
  2. YASMIN [Suspect]
     Indication: ORAL CONTRACEPTION
  3. YASMIN [Suspect]
     Indication: ACNE
     Dosage: 1 U, QD
     Route: 048
     Dates: start: 20030818, end: 20031001

REACTIONS (2)
  - THROMBOSIS [None]
  - SUBCLAVIAN VEIN THROMBOSIS [None]
